FAERS Safety Report 9414444 (Version 1)
Quarter: 2013Q3

REPORT INFORMATION
  Report Type: Spontaneous
  Country: FR (occurrence: FR)
  Receive Date: 20130723
  Receipt Date: 20130723
  Transmission Date: 20140515
  Serious: Yes (Hospitalization)
  Sender: FDA-Public Use
  Company Number: FR-BAYER-2013-085690

PATIENT
  Age: 88 Year
  Sex: Female

DRUGS (3)
  1. CIFLOX [Suspect]
     Dosage: UNK
     Route: 048
     Dates: start: 20121130, end: 20121210
  2. AMOXICILLIN [Suspect]
     Dosage: UNK
     Route: 048
     Dates: start: 20121130, end: 20121210
  3. AMOXICILLIN [Suspect]
     Dosage: UNK
     Route: 048
     Dates: start: 20121221, end: 20121227

REACTIONS (1)
  - Vascular purpura [Recovered/Resolved]
